FAERS Safety Report 7109602-5 (Version None)
Quarter: 2010Q4

REPORT INFORMATION
  Report Type: 
  Country: None (occurrence: None)
  Receive Date: 20101118
  Receipt Date: 20101108
  Transmission Date: 20110411
  Serious: Yes (Hospitalization)
  Sender: FDA-Public Use
  Company Number: 2008BI024335

PATIENT
  Age: 51 Year
  Sex: Female
  Weight: 81 kg

DRUGS (9)
  1. TYSABRI [Suspect]
     Indication: MULTIPLE SCLEROSIS
     Route: 042
     Dates: start: 20080825
  2. SYNTHROID [Concomitant]
     Indication: HYPOTHYROIDISM
  3. MULTIPLE VITAMINS [Concomitant]
  4. BIRTH CONTROL [Concomitant]
     Indication: CONTRACEPTION
     Route: 048
  5. EFFEXOR [Concomitant]
  6. BACLOFEN [Concomitant]
     Indication: MUSCLE SPASMS
  7. NEXIUM [Concomitant]
  8. ALLEGRA [Concomitant]
  9. PROVIGIL [Concomitant]

REACTIONS (11)
  - COUGH [None]
  - FALL [None]
  - HYPERACUSIS [None]
  - INCREASED TENDENCY TO BRUISE [None]
  - INFECTION [None]
  - METRORRHAGIA [None]
  - MULTIPLE SCLEROSIS RELAPSE [None]
  - POOR VENOUS ACCESS [None]
  - PYREXIA [None]
  - THYROID DISORDER [None]
  - URINARY TRACT INFECTION [None]
